FAERS Safety Report 4784993-9 (Version None)
Quarter: 2005Q3

REPORT INFORMATION
  Report Type: 
  Country: None (occurrence: None)
  Receive Date: 20050928
  Receipt Date: 20050915
  Transmission Date: 20060218
  Serious: Yes (Other)
  Sender: FDA-Public Use
  Company Number: S05-USA-04381-01

PATIENT
  Age: 17 Year
  Sex: Male

DRUGS (3)
  1. LEXAPRO [Suspect]
     Indication: MENTAL DISORDER
     Dosage: 10  MG QD PO
     Route: 048
     Dates: end: 20050101
  2. LIPITOR [Suspect]
     Indication: LOW DENSITY LIPOPROTEIN INCREASED
     Dates: start: 20040101, end: 20050101
  3. LIPITOR [Suspect]
     Indication: LOW DENSITY LIPOPROTEIN INCREASED
     Dates: start: 20050101

REACTIONS (5)
  - ALANINE AMINOTRANSFERASE INCREASED [None]
  - ASPARTATE AMINOTRANSFERASE INCREASED [None]
  - DECREASED APPETITE [None]
  - DRUG INTERACTION [None]
  - FEELING ABNORMAL [None]
